FAERS Safety Report 9803107 (Version 2)
Quarter: 2014Q1

REPORT INFORMATION
  Report Type: Spontaneous
  Country: CH (occurrence: CH)
  Receive Date: 20140108
  Receipt Date: 20140307
  Transmission Date: 20141002
  Serious: Yes (Death)
  Sender: FDA-Public Use
  Company Number: CH-BAYER-2014-002464

PATIENT
  Sex: Female

DRUGS (7)
  1. STIVARGA [Suspect]
     Indication: COLORECTAL CANCER METASTATIC
     Dosage: FREQUENCY: QID
     Route: 048
     Dates: start: 201306, end: 20130712
  2. TORASEMID [Concomitant]
     Dosage: 10MG, 1-0-0
  3. PANTOZOL [Concomitant]
     Dosage: 40MG, 1-0-0
  4. TEMESTA EXPIDET [Concomitant]
     Dosage: 1MG, 0-0-1
  5. VITAMIN D3 [Concomitant]
     Dosage: DROPS, 6-0-0
  6. REMERON [Concomitant]
     Dosage: 30MG, 0-0-1
  7. ISCADOR [Concomitant]

REACTIONS (1)
  - Colorectal cancer metastatic [Fatal]
